FAERS Safety Report 16179116 (Version 1)
Quarter: 2019Q2

REPORT INFORMATION
  Report Type: Spontaneous
  Country: US (occurrence: US)
  Receive Date: 20190307
  Receipt Date: 20190307
  Transmission Date: 20190711
  Serious: Yes (Death, Other)
  Sender: FDA-Public Use
  Company Number: None

PATIENT
  Age: 48 Year
  Sex: Female

DRUGS (1)
  1. NEW U LIFE SOMADERM TRANSDERMAL GEL MAXIMUM [Suspect]
     Active Substance: HOMEOPATHICS
     Dosage: ?          OTHER DOSE:305 FLUID OUNCES;?
     Dates: start: 201805, end: 201811

REACTIONS (5)
  - Hair colour changes [None]
  - Paraesthesia [None]
  - Polymenorrhoea [None]
  - Coordination abnormal [None]
  - Therapy cessation [None]
